FAERS Safety Report 15795552 (Version 1)
Quarter: 2019Q1

REPORT INFORMATION
  Report Type: Report from Study
  Country: AT (occurrence: AT)
  Receive Date: 20190107
  Receipt Date: 20190107
  Transmission Date: 20190417
  Serious: Yes (Other)
  Sender: FDA-Public Use
  Company Number: AT-BIOGEN-2019BI00679526

PATIENT
  Age: 31 Year
  Sex: Female

DRUGS (1)
  1. TECFIDERA [Suspect]
     Active Substance: DIMETHYL FUMARATE
     Indication: MULTIPLE SCLEROSIS
     Route: 048
     Dates: start: 20170405

REACTIONS (1)
  - Candida infection [Recovered/Resolved]

NARRATIVE: CASE EVENT DATE: 20170901
